FAERS Safety Report 5920998-X (Version None)
Quarter: 2008Q4

REPORT INFORMATION
  Report Type: 
  Country: None (occurrence: None)
  Receive Date: 20081016
  Receipt Date: 20081007
  Transmission Date: 20090506
  Serious: Yes (Other)
  Sender: FDA-Public Use
  Company Number: US-JNJFOC-20081002156

PATIENT
  Age: 91 Year
  Sex: Female
  Weight: 56.7 kg

DRUGS (5)
  1. SIMPLY SLEEP NIGHTTIME [Suspect]
     Route: 048
  2. SIMPLY SLEEP NIGHTTIME [Suspect]
     Indication: INSOMNIA
     Route: 048
  3. ALLEGRA [Concomitant]
     Indication: MULTIPLE ALLERGIES
     Dosage: YEARS
  4. LOPRESSOR [Concomitant]
     Indication: HYPERTENSION
     Dosage: YEARS
  5. SPIRIVA [Concomitant]
     Indication: EMPHYSEMA
     Dosage: STARTED ^RECENTLY^

REACTIONS (1)
  - DRUG DEPENDENCE [None]
